FAERS Safety Report 14351373 (Version 9)
Quarter: 2019Q2

REPORT INFORMATION
  Report Type: Spontaneous
  Country: US (occurrence: US)
  Receive Date: 20180104
  Receipt Date: 20190509
  Transmission Date: 20190711
  Serious: Yes (Other)
  Sender: FDA-Public Use
  Company Number: US-PFIZER INC-2017553488

PATIENT
  Age: 64 Year
  Sex: Female
  Weight: 113 kg

DRUGS (6)
  1. LYRICA [Suspect]
     Active Substance: PREGABALIN
     Indication: DIABETES MELLITUS
     Dosage: 150 MG, 2X/DAY
     Route: 048
  2. LYRICA [Suspect]
     Active Substance: PREGABALIN
     Indication: BACK PAIN
     Dosage: 75 MG, 3X/DAY
     Route: 048
  3. INSULIN [Concomitant]
     Active Substance: INSULIN NOS
     Indication: DIABETES MELLITUS
     Dosage: UNK
  4. LYRICA [Suspect]
     Active Substance: PREGABALIN
     Indication: FIBROMYALGIA
     Dosage: 150 MG, DAILY
     Route: 048
     Dates: start: 201701, end: 20171225
  5. LYRICA [Suspect]
     Active Substance: PREGABALIN
     Dosage: 75 MG, 2X/DAY
     Route: 048
  6. PREDNISONE. [Concomitant]
     Active Substance: PREDNISONE
     Indication: FIBROMYALGIA
     Dosage: 1 MG, 1X/DAY
     Route: 048
     Dates: start: 2008

REACTIONS (6)
  - Fall [Unknown]
  - Nasopharyngitis [Not Recovered/Not Resolved]
  - Wrist fracture [Recovering/Resolving]
  - Diarrhoea [Not Recovered/Not Resolved]
  - Tremor [Unknown]
  - Sleep disorder [Unknown]

NARRATIVE: CASE EVENT DATE: 201805
